FAERS Safety Report 5717230-9 (Version None)
Quarter: 2008Q2

REPORT INFORMATION
  Report Type: 
  Country: None (occurrence: None)
  Receive Date: 20080423
  Receipt Date: 20080417
  Transmission Date: 20081010
  Serious: Yes (Hospitalization)
  Sender: FDA-Public Use
  Company Number: 2008SP007189

PATIENT
  Age: 44 Year
  Sex: Male

DRUGS (4)
  1. TEMOZOLOMIDE [Suspect]
     Indication: GLIOBLASTOMA MULTIFORME
     Dosage: 75 MG/M2; QD; PO; 190 MG; QD
     Route: 048
     Dates: start: 20080111, end: 20080120
  2. TEMOZOLOMIDE [Suspect]
     Indication: GLIOBLASTOMA MULTIFORME
     Dosage: 75 MG/M2; QD; PO; 190 MG; QD
     Route: 048
     Dates: start: 20071116
  3. BEVACIZUMAB (10 MG/KG) [Suspect]
     Indication: GLIOBLASTOMA MULTIFORME
     Dosage: 10 MG/KG; QD; IV; 773 MG
     Route: 042
     Dates: start: 20080111, end: 20080111
  4. BEVACIZUMAB (10 MG/KG) [Suspect]
     Indication: GLIOBLASTOMA MULTIFORME
     Dosage: 10 MG/KG; QD; IV; 773 MG
     Route: 042
     Dates: start: 20071116

REACTIONS (4)
  - HAEMORRHOIDAL HAEMORRHAGE [None]
  - KLEBSIELLA INFECTION [None]
  - PAIN [None]
  - PERIRECTAL ABSCESS [None]
